FAERS Safety Report 8346228 (Version 7)
Quarter: 2013Q2

REPORT INFORMATION
  Report Type: Spontaneous
  Country: US (occurrence: US)
  Receive Date: 20120120
  Receipt Date: 20130510
  Transmission Date: 20140414
  Serious: Yes (Hospitalization)
  Sender: FDA-Public Use
  Company Number: US-B.I. PHARMACEUTICALS,INC./RIDGEFIELD-2012-BP-01050BP

PATIENT
  Age: 77 Year
  Sex: Male
  Weight: 136.18 kg

DRUGS (25)
  1. PRADAXA [Suspect]
     Indication: ANTICOAGULANT THERAPY
     Dosage: 300 MG
     Route: 048
     Dates: start: 20110107, end: 20120105
  2. PRADAXA [Suspect]
     Indication: DEEP VEIN THROMBOSIS
  3. PRADAXA [Suspect]
     Indication: PULMONARY EMBOLISM
  4. ALLOPURINOL [Concomitant]
     Dosage: 300 MG
     Dates: start: 2010
  5. BUMEX [Concomitant]
     Dosage: 2 MG
     Dates: start: 2000
  6. CELEBREX [Concomitant]
  7. CALCIUM [Concomitant]
  8. COLACE [Concomitant]
     Dosage: 200 MG
  9. GABAPENTIN [Concomitant]
     Dosage: 1200 MG
     Dates: start: 2010
  10. GLIPIZIDE ER [Concomitant]
     Dosage: 10 MG
  11. LISINOPRIL [Concomitant]
     Dosage: 10 MG
  12. OMEPRAZOLE [Concomitant]
     Dosage: 40 MG
  13. SIMVASTATIN [Concomitant]
     Dosage: 40 MG
  14. FENOFIBRATE [Concomitant]
     Dosage: 160 MG
  15. PREVACID [Concomitant]
     Dates: start: 2000
  16. SINGULAIR [Concomitant]
     Dosage: 10 MG
     Dates: start: 2010
  17. SPIRIVA [Concomitant]
     Dosage: 18 MCG
     Dates: start: 2010
  18. AZELASTINE [Concomitant]
     Dosage: 2 PUF
  19. CENTRUM SILVER [Concomitant]
  20. COMBIVENT [Concomitant]
     Route: 055
  21. DALIRESP [Concomitant]
     Dosage: 500 MCG
  22. DUONEB [Concomitant]
  23. HYDROCODONE/ACETAMINOPHEN [Concomitant]
  24. NASONEX [Concomitant]
     Dosage: 100 MCG
  25. PROMETHAZINE [Concomitant]

REACTIONS (5)
  - Upper gastrointestinal haemorrhage [Recovered/Resolved]
  - Anaemia [Recovered/Resolved]
  - Haemorrhage [Recovered/Resolved]
  - Small intestinal haemorrhage [Recovered/Resolved]
  - Rectal haemorrhage [Unknown]
